FAERS Safety Report 8447049-X (Version None)
Quarter: 2012Q2

REPORT INFORMATION
  Report Type: 
  Country: None (occurrence: None)
  Receive Date: 20120619
  Receipt Date: 20120613
  Transmission Date: 20120825
  Serious: Yes (Hospitalization, Other)
  Sender: FDA-Public Use
  Company Number: PHHY2012DK041882

PATIENT
  Sex: Female

DRUGS (5)
  1. CARBOPLATIN [Suspect]
     Indication: NON-SMALL CELL LUNG CANCER
     Dosage: 350 MG
     Route: 042
  2. EMPERAL [Concomitant]
  3. VINORELBINE [Suspect]
     Indication: NON-SMALL CELL LUNG CANCER
     Dosage: 80 MG
     Route: 048
  4. PREDNISOLONE [Concomitant]
     Indication: NAUSEA
     Dosage: 25 MG, QD
     Route: 048
     Dates: start: 20120307
  5. AVASTIN [Suspect]
     Indication: NON-SMALL CELL LUNG CANCER
     Dosage: 400 MG
     Route: 042
     Dates: start: 20120307, end: 20120307

REACTIONS (9)
  - IMPAIRED HEALING [None]
  - THERMAL BURN [None]
  - WOUND [None]
  - FALL [None]
  - SEPSIS [None]
  - STREPTOCOCCAL INFECTION [None]
  - ESCHERICHIA INFECTION [None]
  - PSEUDOMONAS INFECTION [None]
  - WOUND NECROSIS [None]
